FAERS Safety Report 21706525 (Version 1)
Quarter: 2022Q4

REPORT INFORMATION
  Report Type: Spontaneous
  Country: IT (occurrence: IT)
  Receive Date: 20221209
  Receipt Date: 20221209
  Transmission Date: 20230112
  Serious: Yes (Other)
  Sender: FDA-Public Use
  Company Number: IT-MINISAL02-895107

PATIENT
  Age: 74 Year
  Sex: Male
  Weight: 68 kg

DRUGS (2)
  1. GEMCITABINE [Suspect]
     Active Substance: GEMCITABINE
     Indication: Pancreatic neoplasm
     Dosage: 1000 MG/M2 DAYS 1-8-15
     Route: 040
     Dates: start: 20220511, end: 20220817
  2. ABRAXANE [Suspect]
     Active Substance: PACLITAXEL
     Indication: Pancreatic neoplasm
     Dosage: 125 MG/M2 DAY 1-8-15
     Route: 040
     Dates: start: 20220511, end: 20220817

REACTIONS (7)
  - Neutropenia [Recovered/Resolved]
  - Neurotoxicity [Recovered/Resolved]
  - Nausea [Recovered/Resolved with Sequelae]
  - Anaemia [Recovered/Resolved]
  - Asthenia [Recovered/Resolved]
  - Diarrhoea [Recovered/Resolved]
  - Decreased appetite [Recovered/Resolved]

NARRATIVE: CASE EVENT DATE: 20220517
